FAERS Safety Report 10599682 (Version 2)
Quarter: 2014Q4

REPORT INFORMATION
  Report Type: Report from Study
  Country: US (occurrence: US)
  Receive Date: 20141121
  Receipt Date: 20141217
  Transmission Date: 20150529
  Serious: Yes (Other)
  Sender: FDA-Public Use
  Company Number: US-GLAXOSMITHKLINE-US2014022033

PATIENT
  Age: 68 Year
  Sex: Male
  Weight: 77.7 kg

DRUGS (3)
  1. PAZOPANIB TABLET [Suspect]
     Active Substance: PAZOPANIB
     Indication: RENAL CELL CARCINOMA
     Dosage: 800 MG, QD
     Route: 048
     Dates: start: 20140128
  2. MK-3475 SOLUTION FOR INFUSION [Suspect]
     Active Substance: PEMBROLIZUMAB
     Indication: RENAL CELL CARCINOMA
     Dosage: 2 MG/KG, Z
     Route: 042
     Dates: start: 20140128
  3. PAZOPANIB TABLET [Suspect]
     Active Substance: PAZOPANIB
     Dosage: 400 MG, QD
     Dates: start: 20140729

REACTIONS (1)
  - Lipase increased [Recovered/Resolved]

NARRATIVE: CASE EVENT DATE: 20140819
